FAERS Safety Report 6437520-4 (Version None)
Quarter: 2009Q4

REPORT INFORMATION
  Report Type: 
  Country: None (occurrence: None)
  Receive Date: 20091112
  Receipt Date: 20091106
  Transmission Date: 20100525
  Serious: Yes (Hospitalization)
  Sender: FDA-Public Use
  Company Number: US-GILEAD-2009-0025170

PATIENT
  Sex: Female
  Weight: 80.812 kg

DRUGS (8)
  1. LETAIRIS [Suspect]
     Indication: PULMONARY ARTERIAL HYPERTENSION
     Route: 048
     Dates: start: 20080314
  2. COUMADIN [Concomitant]
     Route: 048
  3. COUMADIN [Concomitant]
     Route: 048
  4. OXYGEN [Concomitant]
     Route: 045
  5. FLOLAN [Concomitant]
     Route: 042
  6. PLAQUENIL [Concomitant]
     Route: 048
  7. PRILOSEC [Concomitant]
     Route: 048
  8. SYNTHROID [Concomitant]
     Route: 048

REACTIONS (2)
  - OEDEMA PERIPHERAL [None]
  - RIGHT VENTRICULAR FAILURE [None]
